FAERS Safety Report 5211544-7 (Version None)
Quarter: 2007Q1

REPORT INFORMATION
  Report Type: 
  Country: None (occurrence: None)
  Receive Date: 20070117
  Receipt Date: 20070112
  Transmission Date: 20070707
  Serious: Yes (Life-Threatening, Hospitalization)
  Sender: FDA-Public Use
  Company Number: GB-SANOFI-SYNTHELABO-F01200400818

PATIENT
  Sex: Female
  Weight: 45.5 kg

DRUGS (10)
  1. OXALIPLATIN [Suspect]
     Indication: COLORECTAL CANCER METASTATIC
     Route: 042
     Dates: start: 20040329, end: 20040329
  2. DEXAMETHASONE [Concomitant]
     Dates: start: 20040422, end: 20040425
  3. CYCLIZINE [Concomitant]
     Dates: start: 20040422, end: 20040422
  4. DIAMORPHINE [Concomitant]
     Dates: start: 20040422
  5. METOCLOPRAMIDE [Concomitant]
     Route: 065
     Dates: start: 20040424, end: 20040425
  6. CODYDRAMOL [Concomitant]
  7. PARACETAMOL [Concomitant]
  8. LANSOPRAZOLE [Concomitant]
  9. LEUCOVORIN CALCIUM [Suspect]
     Dosage: 200 MG/M2 2X PER 2 WEEK
     Route: 042
     Dates: start: 20040329, end: 20040330
  10. FLUOROURACIL [Suspect]
     Dosage: 400MG/M2 2XPER WEEK
     Route: 042
     Dates: start: 20040329, end: 20040331

REACTIONS (3)
  - ABDOMINAL PAIN [None]
  - SEPTIC SHOCK [None]
  - VOMITING [None]
